FAERS Safety Report 8717502 (Version 2)
Quarter: 2012Q4

REPORT INFORMATION
  Report Type: 
  Country: US (occurrence: None)
  Receive Date: 20120726
  Receipt Date: 20120814
  Transmission Date: 20130627
  Serious: Yes (Death, Other)
  Sender: FDA-Public Use
  Company Number: 2012MA008615

PATIENT
  Sex: Female

DRUGS (5)
  1. FENTANYL CITRATE [Suspect]
     Indication: PRODUCT USED FOR UNKNOWN INDICATION
     Dates: end: 2010
  2. DIAZEPAM [Suspect]
     Dates: end: 2010
  3. OXAZEPAM [Suspect]
     Dates: end: 2010
  4. TEMAZEPAM [Suspect]
     Dates: end: 2010
  5. HYDROCODONE [Suspect]
     Dates: end: 2010

REACTIONS (9)
  - Aspiration [None]
  - Completed suicide [None]
  - Drug abuse [None]
  - Intentional drug misuse [None]
  - Incorrect route of drug administration [None]
  - Dizziness [None]
  - Haemorrhage [None]
  - Syncope [None]
  - Epistaxis [None]
